FAERS Safety Report 6161140-2 (Version None)
Quarter: 2009Q2

REPORT INFORMATION
  Report Type: 
  Country: None (occurrence: None)
  Receive Date: 20090421
  Receipt Date: 20070718
  Transmission Date: 20091009
  Serious: Yes (Hospitalization)
  Sender: FDA-Public Use
  Company Number: US-ASTRAZENECA-2006UW25340

PATIENT
  Age: 15219 Day
  Sex: Female
  Weight: 86.2 kg

DRUGS (22)
  1. SEROQUEL [Suspect]
     Indication: SCHIZOPHRENIA
     Route: 048
     Dates: start: 20051103, end: 20060701
  2. SEROQUEL [Suspect]
     Indication: BIPOLAR DISORDER
     Route: 048
     Dates: start: 20051103, end: 20060701
  3. SEROQUEL [Suspect]
     Indication: DEPRESSION
     Route: 048
     Dates: start: 20051103, end: 20060701
  4. SEROQUEL [Suspect]
     Dosage: 100MG-500MG
     Route: 048
     Dates: start: 20051102
  5. SEROQUEL [Suspect]
     Dosage: 100MG-500MG
     Route: 048
     Dates: start: 20051102
  6. SEROQUEL [Suspect]
     Dosage: 100MG-500MG
     Route: 048
     Dates: start: 20051102
  7. RISPERDAL [Suspect]
     Dates: start: 19920101, end: 19950101
  8. GEODON [Concomitant]
     Dates: start: 20050101
  9. NAVANE [Concomitant]
     Dates: start: 19800101
  10. ZYPREXA [Concomitant]
  11. CELEXA [Concomitant]
  12. SINGULAIR [Concomitant]
  13. METFORMIN HCL [Concomitant]
  14. NORVASC [Concomitant]
  15. ACTOS [Concomitant]
  16. EFFEXOR XR [Concomitant]
  17. ALTOPREV [Concomitant]
  18. ZESTRIL [Concomitant]
  19. GLUCOPHAGE XR [Concomitant]
  20. PROMETHAZINE [Concomitant]
  21. COMBIVENT [Concomitant]
  22. ADVAIR HFA [Concomitant]

REACTIONS (8)
  - ABSCESS LIMB [None]
  - BIPOLAR DISORDER [None]
  - DEHYDRATION [None]
  - DIABETES MELLITUS [None]
  - HEADACHE [None]
  - PNEUMONITIS [None]
  - PRESYNCOPE [None]
  - SCHIZOAFFECTIVE DISORDER [None]
